FAERS Safety Report 19769422 (Version 2)
Quarter: 2022Q2

REPORT INFORMATION
  Report Type: Report from Study
  Country: US (occurrence: US)
  Receive Date: 20210831
  Receipt Date: 20220426
  Transmission Date: 20220721
  Serious: Yes (Death, Other)
  Sender: FDA-Public Use
  Company Number: US-009507513-2108USA002040

PATIENT

DRUGS (3)
  1. KEYTRUDA [Suspect]
     Active Substance: PEMBROLIZUMAB
     Dosage: 200 MG
     Route: 042
     Dates: end: 20211122
  2. TAXOL [Concomitant]
     Active Substance: PACLITAXEL
     Dosage: 252 MG, IV
     Route: 042
  3. CARBOPLATIN [Concomitant]
     Active Substance: CARBOPLATIN
     Dosage: 248 MG, IV
     Route: 042

REACTIONS (5)
  - Death [Fatal]
  - Product dose omission issue [Unknown]
  - Product distribution issue [Unknown]
  - Product storage error [Unknown]
  - Product temperature excursion issue [Unknown]

NARRATIVE: CASE EVENT DATE: 20220224
